FAERS Safety Report 6686293-9 (Version None)
Quarter: 2010Q2

REPORT INFORMATION
  Report Type: 
  Country: None (occurrence: None)
  Receive Date: 20100419
  Receipt Date: 20100408
  Transmission Date: 20101027
  Serious: Yes (Other)
  Sender: FDA-Public Use
  Company Number: JP-PFIZER INC-2010046202

PATIENT

DRUGS (2)
  1. ALDACTONE [Suspect]
  2. CANDESARTAN CILEXETIL [Suspect]

REACTIONS (1)
  - RENAL TUBULAR ACIDOSIS [None]
